FAERS Safety Report 10459329 (Version 1)
Quarter: 2014Q3

REPORT INFORMATION
  Report Type: Spontaneous
  Country: US (occurrence: US)
  Receive Date: 20140917
  Receipt Date: 20140917
  Transmission Date: 20150326
  Serious: Yes (Death, Other)
  Sender: FDA-Public Use
  Company Number: US-BAXTER-2014BAX055068

PATIENT
  Age: 60 Year
  Sex: Female

DRUGS (7)
  1. IFEX [Suspect]
     Active Substance: IFOSFAMIDE
     Indication: SPINDLE CELL SARCOMA
     Route: 065
  2. FENTANYL. [Concomitant]
     Active Substance: FENTANYL
     Indication: PAIN
     Route: 065
  3. MESNA FOR INJECTION 1 GRAM [Suspect]
     Active Substance: MESNA
     Indication: SPINDLE CELL SARCOMA
     Route: 065
  4. CLONAZEPAM. [Concomitant]
     Active Substance: CLONAZEPAM
     Indication: ANXIETY
     Route: 065
  5. MESNA FOR INJECTION 1 GRAM [Suspect]
     Active Substance: MESNA
     Indication: EPITHELIOID SARCOMA
  6. VANCOMYCIN [Concomitant]
     Active Substance: VANCOMYCIN
     Indication: STAPHYLOCOCCAL BACTERAEMIA
     Route: 065
  7. IFEX [Suspect]
     Active Substance: IFOSFAMIDE
     Indication: EPITHELIOID SARCOMA

REACTIONS (2)
  - Status epilepticus [Recovering/Resolving]
  - Respiratory failure [Fatal]
